FAERS Safety Report 10128201 (Version 1)
Quarter: 2014Q2

REPORT INFORMATION
  Report Type: Spontaneous
  Country: US (occurrence: US)
  Receive Date: 20140428
  Receipt Date: 20140428
  Transmission Date: 20141212
  Serious: No
  Sender: FDA-Public Use
  Company Number: US-BIOGENIDEC-2014BI038582

PATIENT
  Age: 60 Year
  Sex: Female

DRUGS (4)
  1. AVONEX [Suspect]
     Indication: MULTIPLE SCLEROSIS
     Route: 030
     Dates: start: 19960117
  2. AVONEX [Suspect]
     Indication: MULTIPLE SCLEROSIS
     Route: 030
     Dates: start: 19980117
  3. AVONEX [Suspect]
     Indication: MULTIPLE SCLEROSIS
     Route: 030
  4. TYSABRI [Concomitant]
     Indication: MULTIPLE SCLEROSIS
     Route: 042
     Dates: start: 20050203, end: 20050203

REACTIONS (3)
  - Haemorrhage [Recovered/Resolved]
  - Underdose [Recovered/Resolved]
  - Muscle spasms [Recovered/Resolved]
